FAERS Safety Report 9115425 (Version 2)
Quarter: 2013Q4

REPORT INFORMATION
  Report Type: Spontaneous
  Country: GR (occurrence: GR)
  Receive Date: 20130225
  Receipt Date: 20131112
  Transmission Date: 20140711
  Serious: Yes (Other)
  Sender: FDA-Public Use
  Company Number: GR-JNJFOC-20130211250

PATIENT
  Age: 52 Year
  Sex: Male

DRUGS (3)
  1. SIMPONI [Suspect]
     Indication: RHEUMATOID ARTHRITIS
     Dosage: 5 INJECTIONS
     Route: 058
     Dates: end: 20130213
  2. MEDROL [Concomitant]
     Dosage: EVERY MORNING
     Route: 065
  3. ANALGESIC NOS [Concomitant]
     Dosage: AT NIGHT
     Route: 065

REACTIONS (7)
  - Syncope [Recovering/Resolving]
  - Blood pressure increased [Recovering/Resolving]
  - Dizziness [Recovering/Resolving]
  - Constipation [Recovering/Resolving]
  - Dyspepsia [Recovering/Resolving]
  - Asthenia [Recovering/Resolving]
  - Poor quality drug administered [Unknown]
